FAERS Safety Report 6301428-5 (Version None)
Quarter: 2009Q3

REPORT INFORMATION
  Report Type: 
  Country: None (occurrence: None)
  Receive Date: 20090807
  Receipt Date: 20090730
  Transmission Date: 20100115
  Serious: Yes (Other)
  Sender: FDA-Public Use
  Company Number: DE-AMGEN-UK358034

PATIENT
  Sex: Female

DRUGS (2)
  1. NPLATE [Suspect]
     Indication: DRUG USE FOR UNKNOWN INDICATION
     Route: 065
  2. DEXAMETHASONE [Concomitant]
     Route: 065

REACTIONS (1)
  - NO THERAPEUTIC RESPONSE [None]
